FAERS Safety Report 22070679 (Version 1)
Quarter: 2023Q1

REPORT INFORMATION
  Report Type: Spontaneous
  Country: GB (occurrence: GB)
  Receive Date: 20230307
  Receipt Date: 20230307
  Transmission Date: 20230418
  Serious: Yes (Hospitalization, Disabling, Other)
  Sender: FDA-Public Use
  Company Number: None

PATIENT
  Sex: Female

DRUGS (2)
  1. ARIPIPRAZOLE [Suspect]
     Active Substance: ARIPIPRAZOLE
     Indication: Bipolar disorder
     Dosage: 10 MG
     Route: 048
     Dates: start: 20171120, end: 20171207
  2. ARIPIPRAZOLE [Suspect]
     Active Substance: ARIPIPRAZOLE
     Indication: Product used for unknown indication
     Dosage: UNK
     Route: 065

REACTIONS (17)
  - Delusional disorder, persecutory type [Unknown]
  - Delusional perception [Unknown]
  - Anal incontinence [Unknown]
  - Loss of personal independence in daily activities [Unknown]
  - Abnormal behaviour [Unknown]
  - Confusional state [Unknown]
  - Gait disturbance [Unknown]
  - Blood creatinine increased [Unknown]
  - Blood prolactin increased [Unknown]
  - Urinary incontinence [Unknown]
  - Agitation [Unknown]
  - Hypertension [Unknown]
  - Libido increased [Unknown]
  - Pyrexia [Unknown]
  - Photophobia [Unknown]
  - Insomnia [Unknown]
  - Drug ineffective [Unknown]

NARRATIVE: CASE EVENT DATE: 20171205
